FAERS Safety Report 5016706-X (Version None)
Quarter: 2006Q2

REPORT INFORMATION
  Report Type: 
  Country: None (occurrence: None)
  Receive Date: 20060602
  Receipt Date: 20041008
  Transmission Date: 20061013
  Serious: No
  Sender: FDA-Public Use
  Company Number: US-GLAXOSMITHKLINE-A0529101A

PATIENT
  Age: 10 Year
  Sex: Female

DRUGS (2)
  1. AUGMENTIN ES-600 [Suspect]
     Indication: DRUG USE FOR UNKNOWN INDICATION
     Route: 048
     Dates: start: 20040901
  2. NO CONCURRENT MEDICATION [Concomitant]

REACTIONS (3)
  - MYALGIA [None]
  - PROTEIN URINE PRESENT [None]
  - RASH [None]
